FAERS Safety Report 5827332-4 (Version None)
Quarter: 2008Q3

REPORT INFORMATION
  Report Type: 
  Country: None (occurrence: None)
  Receive Date: 20080730
  Receipt Date: 20080723
  Transmission Date: 20090109
  Serious: Yes (Hospitalization)
  Sender: FDA-Public Use
  Company Number: KR-ABBOTT-08P-090-0464685-00

PATIENT
  Age: 50 Year
  Sex: Female

DRUGS (1)
  1. REDUCTIL 15MG [Suspect]
     Indication: WEIGHT DECREASED
     Route: 048

REACTIONS (3)
  - BACK INJURY [None]
  - SPEECH DISORDER [None]
  - SYNCOPE [None]
